FAERS Safety Report 23845360 (Version 1)
Quarter: 2024Q2

REPORT INFORMATION
  Report Type: Spontaneous
  Country: US (occurrence: US)
  Receive Date: 20240511
  Receipt Date: 20240511
  Transmission Date: 20240716
  Serious: Yes (Hospitalization)
  Sender: FDA-Public Use
  Company Number: US-AMGEN-USASP2024089966

PATIENT
  Age: 73 Year
  Sex: Male

DRUGS (3)
  1. CINACALCET HYDROCHLORIDE [Suspect]
     Active Substance: CINACALCET HYDROCHLORIDE
     Indication: Hyperparathyroidism primary
     Dosage: UNK
     Route: 065
  2. CALCITONIN [Concomitant]
     Active Substance: CALCITONIN
     Indication: Hyperparathyroidism primary
     Dosage: FOR 48 HOURS
     Route: 065
  3. PAMIDRONATE [Concomitant]
     Active Substance: PAMIDRONATE DISODIUM
     Indication: Hyperparathyroidism primary
     Dosage: 30 MILLIGRAM, Q4H
     Route: 065

REACTIONS (7)
  - Parathyroid tumour malignant [Unknown]
  - Hypocalcaemia [Recovered/Resolved]
  - Hypercalcaemia [Recovered/Resolved]
  - Normocytic anaemia [Unknown]
  - Blood urea increased [Unknown]
  - Blood creatinine increased [Unknown]
  - Hyponatraemia [Unknown]
